FAERS Safety Report 7786376-6 (Version None)
Quarter: 2011Q3

REPORT INFORMATION
  Report Type: 
  Country: None (occurrence: None)
  Receive Date: 20110929
  Receipt Date: 20110927
  Transmission Date: 20111222
  Serious: Yes (Death)
  Sender: FDA-Public Use
  Company Number: PHHY2009NL67029

PATIENT
  Sex: Male

DRUGS (5)
  1. SANDOSTATIN LAR [Suspect]
     Indication: PANCREATIC NEUROENDOCRINE TUMOUR
     Dosage: 30 MG PER 2 WEEKS
     Route: 030
     Dates: start: 20081101
  2. FUROSEMIDE [Concomitant]
     Dosage: 60 MG,
  3. LOPERAMIDE HCL [Concomitant]
     Dosage: 4X2MG
  4. MEGESTROL ACETATE [Concomitant]
     Dosage: 160 MG,
     Route: 065
  5. NICOTINAMIDE [Concomitant]
     Dosage: 1 X 150 MG

REACTIONS (3)
  - NEOPLASM MALIGNANT [None]
  - TUMOUR MARKER INCREASED [None]
  - HEPATIC ENZYME ABNORMAL [None]
